FAERS Safety Report 15448793 (Version 1)
Quarter: 2018Q3

REPORT INFORMATION
  Report Type: Spontaneous
  Country: US (occurrence: US)
  Receive Date: 20180929
  Receipt Date: 20180929
  Transmission Date: 20181010
  Serious: No
  Sender: FDA-Public Use
  Company Number: US-009507513-1809USA013641

PATIENT
  Age: 33 Year
  Sex: Female
  Weight: 72.56 kg

DRUGS (1)
  1. NEXPLANON [Suspect]
     Active Substance: ETONOGESTREL
     Dosage: 1 DF, UNK
     Route: 059
     Dates: start: 201711, end: 20180925

REACTIONS (4)
  - Headache [Unknown]
  - Menorrhagia [Unknown]
  - Premenstrual syndrome [Unknown]
  - Implant site pain [Unknown]

NARRATIVE: CASE EVENT DATE: 201711
